FAERS Safety Report 12179637 (Version 3)
Quarter: 2016Q4

REPORT INFORMATION
  Report Type: Report from Study
  Country: CO (occurrence: CO)
  Receive Date: 20160314
  Receipt Date: 20161104
  Transmission Date: 20170207
  Serious: Yes (Hospitalization, Other)
  Sender: FDA-Public Use
  Company Number: DE-ACTELION-A-NJ2016-132920

PATIENT
  Age: 55 Year
  Sex: Female

DRUGS (3)
  1. VENTAVIS [Suspect]
     Active Substance: ILOPROST
     Indication: PULMONARY HYPERTENSION
     Dosage: UNK
     Route: 055
     Dates: start: 20151229
  2. VENTAVIS [Suspect]
     Active Substance: ILOPROST
     Dosage: 1 DF, Q8HR
     Route: 055
  3. VENTAVIS [Suspect]
     Active Substance: ILOPROST
     Dosage: 1 DF, 6/D
     Route: 055

REACTIONS (4)
  - Medication error [Not Recovered/Not Resolved]
  - Product use issue [Recovered/Resolved]
  - Somnolence [Not Recovered/Not Resolved]
  - Cardiac failure [Not Recovered/Not Resolved]

NARRATIVE: CASE EVENT DATE: 20160422
